FAERS Safety Report 20569590 (Version 2)
Quarter: 2022Q2

REPORT INFORMATION
  Report Type: Report from Study
  Country: MX (occurrence: MX)
  Receive Date: 20220309
  Receipt Date: 20220505
  Transmission Date: 20220721
  Serious: Yes (Hospitalization)
  Sender: FDA-Public Use
  Company Number: MX-NOVOPROD-897249

PATIENT
  Age: 68 Year
  Sex: Female
  Weight: 68.5 kg

DRUGS (17)
  1. CALCITRIOL [Concomitant]
     Active Substance: CALCITRIOL
     Indication: Product used for unknown indication
     Dosage: UNK
     Route: 065
  2. METFORMIN [Concomitant]
     Active Substance: METFORMIN HYDROCHLORIDE
     Indication: Product used for unknown indication
     Dosage: UNK
     Route: 065
  3. RISEDRONIC ACID [Concomitant]
     Active Substance: RISEDRONIC ACID
     Indication: Product used for unknown indication
     Dosage: UNK
     Route: 065
  4. ASPIRIN [Concomitant]
     Active Substance: ASPIRIN
     Indication: Product used for unknown indication
     Dosage: UNK
     Route: 065
  5. LOSARTAN [Concomitant]
     Active Substance: LOSARTAN
     Indication: Product used for unknown indication
     Dosage: UNK
     Route: 065
  6. ATORVASTATIN [Concomitant]
     Active Substance: ATORVASTATIN
     Indication: Product used for unknown indication
     Dosage: UNK
     Route: 065
  7. EZETIMIBE [Concomitant]
     Active Substance: EZETIMIBE
     Indication: Product used for unknown indication
     Dosage: UNK
     Route: 065
  8. TRAMADOL [Concomitant]
     Active Substance: TRAMADOL
     Indication: Product used for unknown indication
     Dosage: UNK
     Route: 065
  9. VICTOZA [Suspect]
     Active Substance: LIRAGLUTIDE
     Dosage: 1.2 MG
     Route: 065
  10. VICTOZA [Suspect]
     Active Substance: LIRAGLUTIDE
     Dosage: 1.8 MG
     Route: 065
  11. VICTOZA [Suspect]
     Active Substance: LIRAGLUTIDE
     Dosage: UNK (DOSE INCREASED)
     Route: 065
  12. VICTOZA [Suspect]
     Active Substance: LIRAGLUTIDE
     Dosage: UNK
     Route: 065
  13. VICTOZA [Suspect]
     Active Substance: LIRAGLUTIDE
     Indication: Diabetes mellitus
     Dosage: 0.6 MG
     Route: 065
     Dates: start: 202111
  14. METAMIZOLE [Concomitant]
     Active Substance: METAMIZOLE
     Indication: Diarrhoea
  15. METAMIZOLE [Concomitant]
     Active Substance: METAMIZOLE
     Indication: Abdominal pain upper
  16. METAMIZOLE [Concomitant]
     Active Substance: METAMIZOLE
     Indication: Vomiting
  17. METAMIZOLE [Concomitant]
     Active Substance: METAMIZOLE
     Indication: Nausea
     Dosage: UNK
     Route: 065

REACTIONS (4)
  - Nausea [Recovered/Resolved]
  - Abdominal pain upper [Recovered/Resolved]
  - Vomiting [Recovered/Resolved]
  - Diarrhoea [Recovered/Resolved]

NARRATIVE: CASE EVENT DATE: 20211101
